FAERS Safety Report 6579186-9 (Version None)
Quarter: 2010Q1

REPORT INFORMATION
  Report Type: 
  Country: None (occurrence: None)
  Receive Date: 20100212
  Receipt Date: 20100204
  Transmission Date: 20100710
  Serious: Yes (Hospitalization)
  Sender: FDA-Public Use
  Company Number: NO-SANOFI-AVENTIS-2010SA006831

PATIENT
  Age: 51 Year
  Sex: Female

DRUGS (3)
  1. LANTUS [Suspect]
     Route: 058
     Dates: start: 20050601, end: 20090701
  2. NOVORAPID [Concomitant]
     Route: 058
     Dates: start: 20040901
  3. LEVOTHYROXINE SODIUM [Concomitant]
     Dates: start: 20070101

REACTIONS (1)
  - BREAST CANCER FEMALE [None]
